FAERS Safety Report 8235373-5 (Version None)
Quarter: 2012Q1

REPORT INFORMATION
  Report Type: 
  Country: None (occurrence: None)
  Receive Date: 20120326
  Receipt Date: 20120323
  Transmission Date: 20120608
  Serious: No
  Sender: FDA-Public Use
  Company Number: US-PFIZER INC-2012076008

PATIENT
  Sex: Male
  Weight: 86.17 kg

DRUGS (4)
  1. MAXZIDE [Concomitant]
     Indication: DIURETIC THERAPY
     Dosage: 37.5/25 MG, DAILY
  2. RAMIPRIL [Concomitant]
     Indication: BLOOD PRESSURE ABNORMAL
     Dosage: 5 MG, DAILY
  3. LIPITOR [Suspect]
     Indication: BLOOD CALCIUM INCREASED
     Dosage: 40 MG, DAILY
     Route: 048
     Dates: start: 20100101, end: 20100101
  4. ZOCOR [Suspect]
     Dosage: 80 MG, DAILY
     Route: 048
     Dates: start: 20070101, end: 20100101

REACTIONS (1)
  - MYALGIA [None]
